FAERS Safety Report 8993403 (Version 2)
Quarter: 2013Q2

REPORT INFORMATION
  Report Type: Spontaneous
  Country: US (occurrence: US)
  Receive Date: 20130102
  Receipt Date: 20130624
  Transmission Date: 20140414
  Serious: Yes (Other)
  Sender: FDA-Public Use
  Company Number: CHPA2012US025656

PATIENT
  Age: 77 Year
  Sex: Female

DRUGS (3)
  1. EXCEDRIN MIGRAINE [Suspect]
     Indication: MIGRAINE
     Dosage: 2 TO 4 PER DAY
     Route: 048
     Dates: start: 2009
  2. CORTISONE [Concomitant]
     Indication: PAIN
     Dosage: 2 INJECTIONS; PRN
  3. NUROGRIP [Concomitant]
     Indication: HEADACHE
     Dosage: 2 DF, AT NIGHT

REACTIONS (5)
  - Cerebrovascular accident [Not Recovered/Not Resolved]
  - Laceration [Recovered/Resolved]
  - Fall [Recovered/Resolved]
  - Headache [Not Recovered/Not Resolved]
  - Overdose [Unknown]
